FAERS Safety Report 10011941 (Version 1)
Quarter: 2014Q1

REPORT INFORMATION
  Report Type: Spontaneous
  Country: US (occurrence: None)
  Receive Date: 20140312
  Receipt Date: 20140312
  Transmission Date: 20141002
  Serious: Yes (Other)
  Sender: FDA-Public Use
  Company Number: 2014RT000024

PATIENT
  Sex: Female

DRUGS (1)
  1. PROCYSBI (CYSTEAMINE BITARTRATE) CAPSULE, DELAYED RELEASE [Suspect]

REACTIONS (2)
  - Nausea [None]
  - Renal failure acute [None]
